FAERS Safety Report 8768199 (Version 1)
Quarter: 2012Q4

REPORT INFORMATION
  Report Type: Report from Study
  Country: GR (occurrence: GR)
  Receive Date: 20120905
  Receipt Date: 20120905
  Transmission Date: 20130627
  Serious: Yes (Death, Hospitalization)
  Sender: FDA-Public Use
  Company Number: GR-GLAXOSMITHKLINE-B0825871A

PATIENT
  Age: 68 Year
  Sex: Male
  Weight: 55 kg

DRUGS (11)
  1. LAPATINIB [Suspect]
     Indication: LUNG CANCER METASTATIC
     Dosage: 1000MG Per day
     Route: 048
     Dates: start: 20120723, end: 20120807
  2. DEXAMETHASONE [Suspect]
     Indication: METASTASES TO CENTRAL NERVOUS SYSTEM
     Dosage: 2MGML per day
     Dates: start: 20120629, end: 20120812
  3. KEPPRA [Concomitant]
     Indication: CONVULSION
     Dosage: 500MG per day
     Route: 048
     Dates: start: 20120629, end: 20120812
  4. ZANTAC [Concomitant]
     Indication: PROPHYLAXIS
     Dosage: 150MG per day
     Route: 048
     Dates: start: 20120629, end: 20120812
  5. ATROVENT [Concomitant]
     Indication: CHRONIC OBSTRUCTIVE PULMONARY DISEASE
     Dosage: 20MCG per day
     Route: 055
     Dates: start: 19960615, end: 20120812
  6. SYMBICORT [Concomitant]
     Indication: CHRONIC OBSTRUCTIVE PULMONARY DISEASE
     Route: 055
     Dates: start: 19960615, end: 20120808
  7. THEO-DUR [Concomitant]
     Indication: CHRONIC OBSTRUCTIVE PULMONARY DISEASE
     Dosage: 200MCG per day
     Route: 055
     Dates: start: 19960615, end: 20120812
  8. DAKTARIN [Concomitant]
     Indication: MUCOSAL INFLAMMATION
     Dosage: 20MGG per day
     Route: 048
     Dates: end: 20120808
  9. CLEXANE [Concomitant]
     Indication: THROMBOSIS PROPHYLAXIS
     Dates: end: 20120808
  10. XANAX [Concomitant]
     Indication: ANXIETY
     Dosage: .5MG Per day
     Dates: end: 20120808
  11. BIOFENAC [Concomitant]
     Indication: BONE PAIN
     Dosage: 100MG Per day
     Route: 048
     Dates: end: 20120720

REACTIONS (1)
  - Lung infection [Fatal]
